FAERS Safety Report 18880830 (Version 2)
Quarter: 2021Q1

REPORT INFORMATION
  Report Type: Spontaneous
  Country: JP (occurrence: JP)
  Receive Date: 20210212
  Receipt Date: 20210302
  Transmission Date: 20210420
  Serious: Yes (Other)
  Sender: FDA-Public Use
  Company Number: JP-ROCHE-2767610

PATIENT
  Age: 6 Year
  Sex: Female
  Weight: 22 kg

DRUGS (8)
  1. PREDONINE [Suspect]
     Active Substance: PREDNISOLONE
     Indication: NEPHROTIC SYNDROME
     Route: 048
     Dates: start: 20201211
  2. RITUXAN [Concomitant]
     Active Substance: RITUXIMAB
     Indication: NEPHROTIC SYNDROME
     Dosage: DOSAGE IS UNCERTAIN.
     Route: 041
  3. GASTER [Concomitant]
     Active Substance: FAMOTIDINE
     Indication: PROPHYLAXIS
     Route: 048
     Dates: start: 20201211
  4. RITUXAN [Concomitant]
     Active Substance: RITUXIMAB
     Route: 041
     Dates: start: 20210106, end: 20210106
  5. DAIPHEN [Concomitant]
     Active Substance: SULFAMETHOXAZOLE\TRIMETHOPRIM
     Indication: PROPHYLAXIS
     Dosage: ORAL ADMINISTRATION OF 1T AT ONCE A DAY ONLY WEDNESDAYS AND SATURDAYS
     Route: 048
     Dates: start: 20200904
  6. BIO?THREE [Concomitant]
     Active Substance: HERBALS
     Indication: PROPHYLAXIS
     Route: 048
     Dates: start: 20200923
  7. NEORAL [Concomitant]
     Active Substance: CYCLOSPORINE
     Indication: NEPHROTIC SYNDROME
     Route: 048
     Dates: start: 20200212, end: 20210105
  8. MYCOPHENOLATE MOFETIL. [Suspect]
     Active Substance: MYCOPHENOLATE MOFETIL
     Indication: NEPHROTIC SYNDROME
     Route: 048
     Dates: start: 20200106

REACTIONS (7)
  - Hypogammaglobulinaemia [Unknown]
  - Off label use [Unknown]
  - Hyperlipidaemia [Unknown]
  - Glaucoma [Unknown]
  - Intentional product use issue [Unknown]
  - Ocular hypertension [Unknown]
  - Hypertension [Unknown]

NARRATIVE: CASE EVENT DATE: 20201014
